FAERS Safety Report 9743331 (Version 2)
Quarter: 2013Q4

REPORT INFORMATION
  Report Type: Spontaneous
  Country: PT (occurrence: PT)
  Receive Date: 20131210
  Receipt Date: 20131210
  Transmission Date: 20140711
  Serious: Yes (Death, Hospitalization)
  Sender: FDA-Public Use
  Company Number: PT-BAXTER-2013BAX046993

PATIENT
  Age: 61 Year
  Sex: Male
  Weight: 74.7 kg

DRUGS (4)
  1. PHYSIONEAL 40 GLUCOSE 1,36% P/V / 13,6 MG/ML [Suspect]
     Indication: RENAL FAILURE CHRONIC
     Route: 033
     Dates: start: 20090807, end: 20131116
  2. PHYSIONEAL 40 GLUCOSE 1,36% P/V / 13,6 MG/ML [Suspect]
     Indication: PERITONEAL DIALYSIS
  3. PHYSIONEAL 40 GLUCOSE 3,86% P/V/ 38,6 MG/ML CLEAR-FLEX [Suspect]
     Indication: RENAL FAILURE CHRONIC
     Route: 033
     Dates: start: 20090807, end: 20131116
  4. PHYSIONEAL 40 GLUCOSE 3,86% P/V/ 38,6 MG/ML CLEAR-FLEX [Suspect]
     Indication: PERITONEAL DIALYSIS

REACTIONS (2)
  - Death [Fatal]
  - Pyrexia [Unknown]
